FAERS Safety Report 8400851-2 (Version None)
Quarter: 2012Q2

REPORT INFORMATION
  Report Type: 
  Country: None (occurrence: None)
  Receive Date: 20120601
  Receipt Date: 20120525
  Transmission Date: 20120825
  Serious: Yes (Hospitalization)
  Sender: FDA-Public Use
  Company Number: NZ-AMGEN-NZLSP2012028745

PATIENT
  Age: 74 Year
  Sex: Male
  Weight: 76.2 kg

DRUGS (8)
  1. CYCLOPHOSPHAMIDE [Concomitant]
     Indication: DIFFUSE LARGE B-CELL LYMPHOMA
     Dosage: UNK
     Dates: start: 20120302
  2. DOXORUBICIN HCL [Concomitant]
     Indication: DIFFUSE LARGE B-CELL LYMPHOMA
     Dosage: UNK
     Dates: start: 20120302
  3. NEULASTIM [Suspect]
     Indication: NEUTROPENIA
     Dosage: 6 MG, UNK
     Route: 058
     Dates: start: 20120305
  4. MABTHERA [Concomitant]
     Indication: DIFFUSE LARGE B-CELL LYMPHOMA
     Dosage: UNK
     Dates: start: 20120302
  5. VINCRISTINE [Concomitant]
     Indication: DIFFUSE LARGE B-CELL LYMPHOMA
     Dosage: UNK
     Dates: start: 20120302
  6. METHOTREXATE [Concomitant]
     Indication: DIFFUSE LARGE B-CELL LYMPHOMA
     Dosage: UNK
     Route: 042
     Dates: start: 20120309
  7. PREDNISOLONE [Concomitant]
     Indication: DIFFUSE LARGE B-CELL LYMPHOMA
     Dosage: UNK
     Dates: start: 20120302
  8. ETOPOSIDE [Concomitant]
     Indication: CENTRAL NERVOUS SYSTEM LYMPHOMA
     Dosage: UNK
     Dates: start: 20120302

REACTIONS (2)
  - DRUG INEFFECTIVE [None]
  - FEBRILE NEUTROPENIA [None]
